FAERS Safety Report 21854942 (Version 1)
Quarter: 2023Q1

REPORT INFORMATION
  Report Type: Report from Study
  Country: US (occurrence: US)
  Receive Date: 20230112
  Receipt Date: 20230112
  Transmission Date: 20230418
  Serious: No
  Sender: FDA-Public Use
  Company Number: US-ABBVIE-4233719

PATIENT
  Sex: Female

DRUGS (1)
  1. SKYRIZI [Suspect]
     Active Substance: RISANKIZUMAB-RZAA
     Indication: Psoriasis
     Dosage: EVENTS ONSET DATE 2022
     Route: 058
     Dates: start: 20220204

REACTIONS (3)
  - SARS-CoV-2 test positive [Unknown]
  - Psoriasis [Not Recovered/Not Resolved]
  - Nasopharyngitis [Unknown]
